FAERS Safety Report 16568540 (Version 1)
Quarter: 2019Q3

REPORT INFORMATION
  Report Type: Spontaneous
  Country: US (occurrence: US)
  Receive Date: 20190712
  Receipt Date: 20190712
  Transmission Date: 20191004
  Serious: Yes (Other)
  Sender: FDA-Public Use
  Company Number: PHHY2019US161507

PATIENT
  Age: 71 Year
  Sex: Male

DRUGS (2)
  1. RITUXIMAB. [Suspect]
     Active Substance: RITUXIMAB
     Indication: ORGANISING PNEUMONIA
     Route: 065
  2. PREDNISONE. [Suspect]
     Active Substance: PREDNISONE
     Indication: ORGANISING PNEUMONIA
     Route: 065

REACTIONS (5)
  - Product use in unapproved indication [Unknown]
  - Insomnia [Unknown]
  - Organising pneumonia [Unknown]
  - Therapy non-responder [Unknown]
  - Disease recurrence [Unknown]
